FAERS Safety Report 16087844 (Version 9)
Quarter: 2021Q1

REPORT INFORMATION
  Report Type: Report from Study
  Country: US (occurrence: US)
  Receive Date: 20190319
  Receipt Date: 20210204
  Transmission Date: 20210419
  Serious: Yes (Death, Hospitalization, Other)
  Sender: FDA-Public Use
  Company Number: US-ROCHE-2281938

PATIENT
  Age: 74 Year
  Sex: Male
  Weight: 63.5 kg

DRUGS (31)
  1. MIRALAX [Concomitant]
     Active Substance: POLYETHYLENE GLYCOL 3350
  2. ETOPOSIDE. [Suspect]
     Active Substance: ETOPOSIDE
     Indication: HIGH-GRADE B-CELL LYMPHOMA
     Route: 042
     Dates: start: 20190228, end: 20190402
  3. VITAMIN D3 [Concomitant]
     Active Substance: CHOLECALCIFEROL
     Dosage: 2,000 UNITS
  4. BACTRIM DS [Concomitant]
     Active Substance: SULFAMETHOXAZOLE\TRIMETHOPRIM
     Indication: PROPHYLAXIS
     Route: 048
  5. VINCRISTINE [Suspect]
     Active Substance: VINCRISTINE
     Indication: HIGH-GRADE B-CELL LYMPHOMA
     Route: 042
     Dates: start: 20190228, end: 20190402
  6. LASIX [Concomitant]
     Active Substance: FUROSEMIDE
     Dosage: 04/MAR/2019 TO 06/MAR/2019
     Route: 042
  7. DEXTROSE. [Concomitant]
     Active Substance: DEXTROSE
  8. HUMALOG [Concomitant]
     Active Substance: INSULIN LISPRO
     Dosage: 1 TO 5 UNITS
  9. SEVELAMER [Concomitant]
     Active Substance: SEVELAMER
  10. FLOMAX [Concomitant]
     Active Substance: TAMSULOSIN HYDROCHLORIDE
     Indication: VOMITING
  11. VENETOCLAX. [Suspect]
     Active Substance: VENETOCLAX
     Indication: HIGH-GRADE B-CELL LYMPHOMA
     Route: 048
     Dates: start: 20190302, end: 20190401
  12. CYCLOPHOSPHAMIDE. [Suspect]
     Active Substance: CYCLOPHOSPHAMIDE
     Indication: HIGH-GRADE B-CELL LYMPHOMA
     Route: 042
     Dates: start: 20190228, end: 20190402
  13. DOXORUBICIN [Suspect]
     Active Substance: DOXORUBICIN
     Indication: HIGH-GRADE B-CELL LYMPHOMA
     Route: 042
     Dates: start: 20190228, end: 20190402
  14. ZOFRAN [Concomitant]
     Active Substance: ONDANSETRON HYDROCHLORIDE
  15. ACETAMINOPHEN. [Concomitant]
     Active Substance: ACETAMINOPHEN
  16. FLOMAX [Concomitant]
     Active Substance: TAMSULOSIN HYDROCHLORIDE
     Indication: NAUSEA
     Dosage: NIGHTLY
     Route: 048
  17. ACYCLOVIR. [Concomitant]
     Active Substance: ACYCLOVIR
     Route: 048
  18. PROTONIX [Concomitant]
     Active Substance: PANTOPRAZOLE SODIUM
  19. TUMS [Concomitant]
     Active Substance: CALCIUM CARBONATE
  20. TESSALON [Concomitant]
     Active Substance: BENZONATATE
     Indication: COUGH
     Route: 048
  21. MAG?OX [Concomitant]
     Active Substance: MAGNESIUM OXIDE
     Route: 048
  22. COMPAZINE [Concomitant]
     Active Substance: PROCHLORPERAZINE MALEATE
     Indication: NAUSEA
     Route: 048
  23. VITAMIN D3 [Concomitant]
     Active Substance: CHOLECALCIFEROL
     Dosage: 4000 UNITS
     Route: 048
  24. RITUXIMAB. [Suspect]
     Active Substance: RITUXIMAB
     Indication: HIGH-GRADE B-CELL LYMPHOMA
     Route: 065
     Dates: start: 20190228, end: 20190402
  25. PREDNISONE. [Suspect]
     Active Substance: PREDNISONE
     Indication: HIGH-GRADE B-CELL LYMPHOMA
     Route: 048
     Dates: start: 20190228, end: 20190402
  26. LACTULOSE. [Concomitant]
     Active Substance: LACTULOSE
  27. ALLOPURINOL. [Concomitant]
     Active Substance: ALLOPURINOL
  28. TRAMADOL. [Concomitant]
     Active Substance: TRAMADOL
  29. KLOR?CON [Concomitant]
     Active Substance: POTASSIUM CHLORIDE
     Route: 048
  30. LASIX [Concomitant]
     Active Substance: FUROSEMIDE
     Route: 048
  31. COMPAZINE [Concomitant]
     Active Substance: PROCHLORPERAZINE MALEATE
     Indication: VOMITING

REACTIONS (19)
  - Hyperglycaemia [Recovered/Resolved]
  - Hypothermia [Recovered/Resolved]
  - Tachycardia [Unknown]
  - Tachycardia [Fatal]
  - Neutrophil count decreased [Recovered/Resolved]
  - White blood cell count decreased [Recovered/Resolved]
  - Oedema peripheral [Recovered/Resolved]
  - Abdominal tenderness [Unknown]
  - Hypoglycaemia [Recovered/Resolved]
  - Febrile neutropenia [Recovered/Resolved]
  - Pancytopenia [Recovered/Resolved]
  - Hypokalaemia [Recovered/Resolved]
  - Lymphocyte count decreased [Recovered/Resolved]
  - Hypophosphataemia [Recovered/Resolved]
  - Sepsis [Fatal]
  - Platelet count decreased [Recovered/Resolved]
  - Hypoalbuminaemia [Recovered/Resolved]
  - Abdominal pain [Recovered/Resolved]
  - Enteritis [Unknown]

NARRATIVE: CASE EVENT DATE: 20190303
